FAERS Safety Report 22123889 (Version 1)
Quarter: 2023Q1

REPORT INFORMATION
  Report Type: Spontaneous
  Country: US (occurrence: None)
  Receive Date: 20230322
  Receipt Date: 20230322
  Transmission Date: 20230418
  Serious: Yes (Other)
  Sender: FDA-Public Use
  Company Number: US-ROCHE-3313291

PATIENT
  Sex: Male
  Weight: 118.04 kg

DRUGS (11)
  1. GAZYVA [Suspect]
     Active Substance: OBINUTUZUMAB
     Indication: Chronic lymphocytic leukaemia
     Dosage: 100 MG TAKEN AS A TEST DOSE
     Route: 042
     Dates: start: 20230314
  2. GAZYVA [Suspect]
     Active Substance: OBINUTUZUMAB
     Dosage: TAKEN THIS DOSE FOR THE NEXT 3 WEEKS
     Route: 042
     Dates: start: 20230315
  3. KLONOPIN [Suspect]
     Active Substance: CLONAZEPAM
     Indication: Sleep disorder
     Route: 048
  4. ADDERALL XR [Concomitant]
     Active Substance: AMPHETAMINE ASPARTATE\AMPHETAMINE SULFATE\DEXTROAMPHETAMINE SACCHARATE\DEXTROAMPHETAMINE SULFATE
     Indication: Fatigue
     Route: 048
  5. NICOTINAMIDE [Concomitant]
     Active Substance: NIACINAMIDE
     Route: 048
  6. GABAPENTIN [Concomitant]
     Active Substance: GABAPENTIN
     Indication: Restless legs syndrome
     Route: 048
  7. LAMOTRIGINE [Concomitant]
     Active Substance: LAMOTRIGINE
     Indication: Seizure
     Route: 048
  8. SEROQUEL [Concomitant]
     Active Substance: QUETIAPINE FUMARATE
     Route: 048
  9. CELEBREX [Concomitant]
     Active Substance: CELECOXIB
     Indication: Myalgia
     Dosage: AS REQUIRED
     Route: 048
  10. TYLENOL [Concomitant]
     Active Substance: ACETAMINOPHEN
     Indication: Myalgia
     Dosage: AS REQUIRED
     Route: 048
  11. CYMBALTA [Concomitant]
     Active Substance: DULOXETINE HYDROCHLORIDE
     Indication: Depression
     Route: 048

REACTIONS (5)
  - Loss of consciousness [Recovered/Resolved]
  - Fall [Unknown]
  - Dizziness [Not Recovered/Not Resolved]
  - Dizziness [Not Recovered/Not Resolved]
  - Off label use [Unknown]

NARRATIVE: CASE EVENT DATE: 20230314
